FAERS Safety Report 11069543 (Version 2)
Quarter: 2015Q2

REPORT INFORMATION
  Report Type: Spontaneous
  Country: US (occurrence: US)
  Receive Date: 20150427
  Receipt Date: 20150520
  Transmission Date: 20150821
  Serious: No
  Sender: FDA-Public Use
  Company Number: US-GLAXOSMITHKLINE-US2015054662

PATIENT
  Age: 61 Year
  Sex: Female

DRUGS (1)
  1. NICORETTE [Suspect]
     Active Substance: NICOTINE
     Indication: NICOTINE DEPENDENCE
     Dosage: 2 MG, UNK
     Route: 002
     Dates: end: 20150420

REACTIONS (3)
  - Nicotine dependence [Not Recovered/Not Resolved]
  - Drug administration error [Not Recovered/Not Resolved]
  - Hypoaesthesia [Not Recovered/Not Resolved]
